FAERS Safety Report 24158775 (Version 1)
Quarter: 2024Q3

REPORT INFORMATION
  Report Type: Spontaneous
  Country: US (occurrence: US)
  Receive Date: 20240731
  Receipt Date: 20240731
  Transmission Date: 20241016
  Serious: No
  Sender: BIOMARIN
  Company Number: US-BIOMARINAP-US-2024-159466

PATIENT

DRUGS (5)
  1. PALYNZIQ [Suspect]
     Active Substance: PEGVALIASE-PQPZ
     Indication: Phenylketonuria
     Dosage: 20 MILLIGRAM, QD
     Route: 058
  2. IBUPROFEN [Concomitant]
     Active Substance: IBUPROFEN
     Indication: Product used for unknown indication
  3. FAMOTIDINE [Concomitant]
     Active Substance: FAMOTIDINE
     Indication: Product used for unknown indication
  4. LORATADINE [Concomitant]
     Active Substance: LORATADINE
     Indication: Product used for unknown indication
  5. MEDICAL FOOD [Concomitant]
     Active Substance: MEDICAL FOOD
     Indication: Product used for unknown indication

REACTIONS (3)
  - Weight decreased [Recovering/Resolving]
  - Stress [Recovering/Resolving]
  - Treatment noncompliance [Recovering/Resolving]

NARRATIVE: CASE EVENT DATE: 20240625
